FAERS Safety Report 15239407 (Version 2)
Quarter: 2018Q3

REPORT INFORMATION
  Report Type: Spontaneous
  Country: FR (occurrence: JP)
  Receive Date: 20180803
  Receipt Date: 20180831
  Transmission Date: 20181010
  Serious: Yes (Other)
  Sender: FDA-Public Use
  Company Number: FR-PFM-2018-06128

PATIENT

DRUGS (7)
  1. HEMANGIOL [Suspect]
     Active Substance: PROPRANOLOL HYDROCHLORIDE
     Dosage: 2 MG/KG (1 MG/KG  2/1 DAY)
     Route: 048
     Dates: start: 20171207, end: 20171208
  2. INCREMIN [Concomitant]
     Active Substance: FERRIC PYROPHOSPHATE
     Indication: ANAEMIA
     Dosage: 2 ML, UNK
     Route: 048
     Dates: start: 20170927, end: 20180502
  3. ALFAROL [Concomitant]
     Active Substance: ALFACALCIDOL
     Indication: RICKETS
     Dosage: 0.03 ?G, UNK
     Route: 048
     Dates: start: 20170927, end: 20180502
  4. HEMANGIOL [Suspect]
     Active Substance: PROPRANOLOL HYDROCHLORIDE
     Dosage: 1 MG/KG (0.5 MG/KG  2/1 DAY)
     Route: 048
     Dates: start: 20171209, end: 20171212
  5. HEMANGIOL [Suspect]
     Active Substance: PROPRANOLOL HYDROCHLORIDE
     Dosage: 2.4 MG/KG (1.2 MG/KG  2/1 DAY)
     Route: 048
     Dates: start: 20180309
  6. HEMANGIOL [Suspect]
     Active Substance: PROPRANOLOL HYDROCHLORIDE
     Indication: INFANTILE HAEMANGIOMA
     Dosage: 1 MG/KG (0.5 MG/KG  2/1 DAY)
     Route: 048
     Dates: start: 20171201, end: 20171206
  7. HEMANGIOL [Suspect]
     Active Substance: PROPRANOLOL HYDROCHLORIDE
     Dosage: UNK
     Route: 048
     Dates: start: 20171213, end: 20180308

REACTIONS (3)
  - Cyanosis [Unknown]
  - Apnoeic attack [Recovered/Resolved]
  - Contraindicated product administered [Unknown]

NARRATIVE: CASE EVENT DATE: 20171208
